FAERS Safety Report 6226008-1 (Version None)
Quarter: 2009Q2

REPORT INFORMATION
  Report Type: 
  Country: None (occurrence: None)
  Receive Date: 20090612
  Receipt Date: 20090602
  Transmission Date: 20091009
  Serious: Yes (Death, Hospitalization, Other)
  Sender: FDA-Public Use
  Company Number: GB-PFIZER INC-2008055803

PATIENT
  Age: 61 Year

DRUGS (1)
  1. SUTENT [Suspect]
     Indication: RENAL CELL CARCINOMA
     Dosage: 50 MG, 1X/DAY, DAILY: CYCLICAL
     Route: 048
     Dates: start: 20080416, end: 20080627

REACTIONS (19)
  - ACUTE RESPIRATORY DISTRESS SYNDROME [None]
  - BACTERIAL INFECTION [None]
  - CARDIAC FLUTTER [None]
  - CARDIOTOXICITY [None]
  - COUGH [None]
  - DENTAL ALVEOLAR ANOMALY [None]
  - DYSPNOEA [None]
  - EXERCISE TOLERANCE DECREASED [None]
  - FATIGUE [None]
  - GASTROINTESTINAL HAEMORRHAGE [None]
  - HAEMOPTYSIS [None]
  - INSOMNIA [None]
  - LOW CARDIAC OUTPUT SYNDROME [None]
  - MULTI-ORGAN FAILURE [None]
  - ORTHOPNOEA [None]
  - PANCREATITIS ACUTE [None]
  - PANCYTOPENIA [None]
  - PULMONARY OEDEMA [None]
  - RENAL FAILURE [None]
